FAERS Safety Report 9824714 (Version 1)
Quarter: 2014Q1

REPORT INFORMATION
  Report Type: Spontaneous
  Country: US (occurrence: US)
  Receive Date: 20140117
  Receipt Date: 20140117
  Transmission Date: 20141002
  Serious: Yes (Other)
  Sender: FDA-Public Use
  Company Number: US-AMGEN-USASP2014001720

PATIENT
  Age: 72 Year
  Sex: Female

DRUGS (5)
  1. PROLIA [Suspect]
     Indication: OSTEOPOROSIS POSTMENOPAUSAL
     Dosage: 60 MG, UNK
     Route: 065
     Dates: start: 201308
  2. ATIVAN [Concomitant]
     Dosage: DAILY
  3. ZOFRAN                             /00955301/ [Concomitant]
  4. TUMS                               /00193601/ [Concomitant]
     Dosage: 1, HS
  5. VITAMIN D                          /00107901/ [Concomitant]

REACTIONS (13)
  - Rheumatoid arthritis [Unknown]
  - Nausea [Unknown]
  - Stress [Unknown]
  - Blood cholesterol increased [Unknown]
  - Flank pain [Not Recovered/Not Resolved]
  - Calcium deficiency [Unknown]
  - Osteoarthritis [Unknown]
  - Gastrointestinal pain [Unknown]
  - Red blood cell sedimentation rate decreased [Unknown]
  - Muscle spasms [Unknown]
  - Constipation [Unknown]
  - Urticaria [Recovered/Resolved]
  - Rash [Not Recovered/Not Resolved]
